FAERS Safety Report 4776904-7 (Version None)
Quarter: 2005Q3

REPORT INFORMATION
  Report Type: 
  Country: None (occurrence: None)
  Receive Date: 20050921
  Receipt Date: 20050902
  Transmission Date: 20060218
  Serious: Yes (Hospitalization, Other)
  Sender: FDA-Public Use
  Company Number: US_0506118339

PATIENT
  Age: 67 Year
  Sex: Female
  Weight: 88 kg

DRUGS (2)
  1. FORTEO [Suspect]
     Indication: OSTEOPOROSIS
     Dosage: 20 UG/1 DAY
     Dates: start: 20050501
  2. EVISTA [Suspect]
     Indication: BONE DISORDER
     Dates: end: 20050501

REACTIONS (20)
  - AMNESIA [None]
  - ANKLE FRACTURE [None]
  - ARTERIAL OCCLUSIVE DISEASE [None]
  - ARTERIOSCLEROSIS [None]
  - ARTHRALGIA [None]
  - BACK PAIN [None]
  - BLOOD PRESSURE DECREASED [None]
  - BODY HEIGHT DECREASED [None]
  - BONE PAIN [None]
  - CHEST PAIN [None]
  - CONTUSION [None]
  - DIZZINESS [None]
  - DRUG DOSE OMISSION [None]
  - DYSPNOEA [None]
  - FOOT FRACTURE [None]
  - HEART RATE DECREASED [None]
  - INJECTION SITE HAEMORRHAGE [None]
  - MUSCLE SPASMS [None]
  - PAIN IN EXTREMITY [None]
  - PHARMACEUTICAL PRODUCT COMPLAINT [None]
